FAERS Safety Report 7908903-8 (Version None)
Quarter: 2011Q4

REPORT INFORMATION
  Report Type: 
  Country: None (occurrence: None)
  Receive Date: 20111111
  Receipt Date: 20111101
  Transmission Date: 20120403
  Serious: Yes (Other)
  Sender: FDA-Public Use
  Company Number: JP-BRISTOL-MYERS SQUIBB COMPANY-16215337

PATIENT
  Age: 61 Year
  Sex: Female

DRUGS (1)
  1. TAXOL [Suspect]
     Indication: MALIGNANT PERITONEAL NEOPLASM
     Dates: start: 20100924

REACTIONS (2)
  - CYSTOID MACULAR OEDEMA [None]
  - CATARACT [None]
